FAERS Safety Report 25749018 (Version 1)
Quarter: 2025Q3

REPORT INFORMATION
  Report Type: Report from Study
  Country: US (occurrence: US)
  Receive Date: 20250902
  Receipt Date: 20250902
  Transmission Date: 20251020
  Serious: Yes (Hospitalization, Other)
  Sender: Haleon PLC
  Company Number: US-002147023-NVSC2023US111153

PATIENT
  Age: 52 Year
  Sex: Female
  Weight: 96.62 kg

DRUGS (14)
  1. DICLOFENAC [Suspect]
     Active Substance: DICLOFENAC
     Indication: Psoriatic arthropathy
  2. DICLOFENAC [Suspect]
     Active Substance: DICLOFENAC
     Indication: Psoriasis
  3. METHOTREXATE [Suspect]
     Active Substance: METHOTREXATE
     Indication: Psoriatic arthropathy
  4. METHOTREXATE [Suspect]
     Active Substance: METHOTREXATE
     Indication: Psoriasis
  5. HUMIRA [Concomitant]
     Active Substance: ADALIMUMAB
     Indication: Product used for unknown indication
  6. ATORVASTATIN [Concomitant]
     Active Substance: ATORVASTATIN
     Indication: Product used for unknown indication
  7. VITAMIN D3 [Concomitant]
     Active Substance: CHOLECALCIFEROL
     Indication: Product used for unknown indication
  8. OTEZLA [Concomitant]
     Active Substance: APREMILAST
     Indication: Product used for unknown indication
  9. COSENTYX [Concomitant]
     Active Substance: SECUKINUMAB
     Indication: Product used for unknown indication
  10. TALTZ [Suspect]
     Active Substance: IXEKIZUMAB
     Indication: Psoriasis
  11. TALTZ [Suspect]
     Active Substance: IXEKIZUMAB
     Indication: Psoriatic arthropathy
  12. COSENTYX [Suspect]
     Active Substance: SECUKINUMAB
     Indication: Psoriatic arthropathy
  13. COSENTYX [Suspect]
     Active Substance: SECUKINUMAB
     Indication: Psoriasis
  14. COSENTYX [Suspect]
     Active Substance: SECUKINUMAB

REACTIONS (24)
  - Adverse drug reaction [Unknown]
  - Tendonitis [Unknown]
  - Pyrexia [Unknown]
  - Skin hypertrophy [Unknown]
  - Alopecia [Unknown]
  - Psoriasis [Unknown]
  - Drug ineffective [Unknown]
  - Dactylitis [Unknown]
  - Skin lesion [Unknown]
  - Back pain [Unknown]
  - Gastrointestinal disorder [Unknown]
  - Product use in unapproved indication [Unknown]
  - Arthritis [Unknown]
  - Anxiety [Unknown]
  - Depression [Unknown]
  - Therapeutic product effect incomplete [Unknown]
  - Deafness [Unknown]
  - Skin lesion [Unknown]
  - Swelling [Unknown]
  - Chills [Unknown]
  - Psoriatic arthropathy [Unknown]
  - Hyperhidrosis [Unknown]
  - Musculoskeletal stiffness [Unknown]
  - Rash erythematous [Unknown]
